FAERS Safety Report 8690792 (Version 3)
Quarter: 2013Q4

REPORT INFORMATION
  Report Type: Report from Study
  Country: US (occurrence: US)
  Receive Date: 20120728
  Receipt Date: 20131101
  Transmission Date: 20140711
  Serious: Yes (Other)
  Sender: FDA-Public Use
  Company Number: US-009507513-1207USA009064

PATIENT
  Sex: Female

DRUGS (4)
  1. PEGASYS [Suspect]
     Indication: CHRONIC HEPATITIS C
     Dosage: UNK
     Dates: start: 20060602, end: 20071207
  2. PEGASYS [Suspect]
     Dosage: UNK
     Dates: start: 20000107, end: 20010601
  3. REBETOL [Suspect]
     Indication: CHRONIC HEPATITIS C
     Dosage: UNK
     Dates: start: 20060602, end: 20071207
  4. REBETOL [Suspect]
     Dosage: UNK
     Dates: start: 20000107, end: 20010601

REACTIONS (7)
  - Aggression [Unknown]
  - Hepatitis C [Unknown]
  - Memory impairment [Unknown]
  - Confusional state [Unknown]
  - Apathy [Unknown]
  - Depression [Unknown]
  - Hepatitis C [Unknown]
